FAERS Safety Report 10726221 (Version 1)
Quarter: 2015Q1

REPORT INFORMATION
  Report Type: Report from Study
  Country: AU (occurrence: AU)
  Receive Date: 20150121
  Receipt Date: 20150121
  Transmission Date: 20150721
  Serious: Yes (Other)
  Sender: FDA-Public Use
  Company Number: PHHY2015AU005194

PATIENT
  Age: 49 Year
  Sex: Female

DRUGS (1)
  1. ACLASTA [Suspect]
     Active Substance: ZOLEDRONIC ACID
     Indication: PRODUCT USED FOR UNKNOWN INDICATION
     Dosage: 5 MG, UNK
     Route: 042
     Dates: start: 20130409

REACTIONS (5)
  - Osteopenia [Unknown]
  - Gamma-glutamyltransferase increased [Recovered/Resolved]
  - Arthritis enteropathic [Unknown]
  - Protein total increased [Recovered/Resolved]
  - Blood albumin increased [Recovered/Resolved]

NARRATIVE: CASE EVENT DATE: 20130703
